FAERS Safety Report 8311115-X (Version None)
Quarter: 2012Q2

REPORT INFORMATION
  Report Type: 
  Country: None (occurrence: None)
  Receive Date: 20120425
  Receipt Date: 20120418
  Transmission Date: 20120825
  Serious: Yes (Hospitalization)
  Sender: FDA-Public Use
  Company Number: RO-ABBOTT-12P-135-0927769-00

PATIENT
  Sex: Male
  Weight: 71.5 kg

DRUGS (13)
  1. ZEMPLAR [Suspect]
     Indication: HYPERPARATHYROIDISM SECONDARY
     Route: 048
     Dates: start: 20110612
  2. ATORVASTATIN CALCIUM [Concomitant]
     Indication: DYSLIPIDAEMIA
     Dosage: 5 MG DAILY
     Route: 048
     Dates: end: 20120104
  3. PENTOXIFYLLINUM [Concomitant]
     Indication: ARTERIOSCLEROSIS
     Dosage: 800 MG DAILY
     Route: 048
  4. SPIRONOLACTONE [Concomitant]
     Indication: PRODUCT USED FOR UNKNOWN INDICATION
     Dosage: 25 MG DAILY
     Route: 048
  5. THIOGAMMA [Concomitant]
     Indication: DIABETIC NEUROPATHY
     Dosage: 1.2 GRAM DAILY
     Route: 048
  6. INADAPAMID [Concomitant]
     Indication: HYPERTENSION
     Dosage: 1 - 1.5 MG TABLET DAILY
     Route: 048
     Dates: start: 20110827, end: 20111206
  7. ASPENTER [Concomitant]
     Indication: PRODUCT USED FOR UNKNOWN INDICATION
     Dosage: 75 MG DAILY
  8. LANTUS [Concomitant]
     Indication: TYPE 2 DIABETES MELLITUS
     Route: 058
  9. NEUROMION [Concomitant]
     Indication: DIABETIC COMPLICATION
     Route: 048
  10. DIABETIKER [Concomitant]
     Indication: DIABETIC COMPLICATION
     Route: 048
     Dates: end: 20120104
  11. AMLODIPINE [Concomitant]
     Indication: HYPERTENSION
     Dosage: 10 MG DAILY
     Route: 048
  12. TAMSULOSIN HYDROCHLORIDE [Concomitant]
     Indication: PROSTATIC ADENOMA
     Route: 048
  13. IRBESARTAN [Concomitant]
     Indication: HYPERTENSION
     Dosage: 75 MG DAILY
     Route: 048
     Dates: end: 20111206

REACTIONS (1)
  - ATRIAL FLUTTER [None]
